FAERS Safety Report 10197954 (Version 1)
Quarter: 2014Q2

REPORT INFORMATION
  Report Type: Spontaneous
  Country: US (occurrence: None)
  Receive Date: 20140523
  Receipt Date: 20140523
  Transmission Date: 20141212
  Serious: Yes (Life-Threatening, Hospitalization, Other)
  Sender: FDA-Public Use
  Company Number: None

PATIENT
  Age: 18 Year
  Sex: Male
  Weight: 56.7 kg

DRUGS (1)
  1. ZOLPIDEM 10 MG TEVA [Suspect]
     Indication: INSOMNIA
     Dosage: 1 PILL, AT BEDTIME, TAKEN BY MOUTH
     Route: 048
     Dates: start: 20140504, end: 20140507

REACTIONS (4)
  - Road traffic accident [None]
  - Insomnia [None]
  - Product substitution issue [None]
  - Drug ineffective [None]
